FAERS Safety Report 7546331-8 (Version None)
Quarter: 2011Q2

REPORT INFORMATION
  Report Type: 
  Country: None (occurrence: None)
  Receive Date: 20110614
  Receipt Date: 20040317
  Transmission Date: 20111010
  Serious: Yes (Other)
  Sender: FDA-Public Use
  Company Number: PHFR2004GB00589

PATIENT
  Sex: Male

DRUGS (3)
  1. INDOMETHACIN [Concomitant]
     Indication: GOUT
     Dosage: 200 MG/DAY
     Route: 048
  2. CITALOPRAM [Concomitant]
     Indication: DEPRESSION
     Dosage: 40 MG/DAY
     Route: 048
  3. CLOZAPINE [Suspect]
     Indication: SCHIZOPHRENIA
     Dosage: 450 MG/DAY
     Route: 048
     Dates: start: 20031114

REACTIONS (3)
  - GAIT DISTURBANCE [None]
  - FLUSHING [None]
  - SINUS TACHYCARDIA [None]
